FAERS Safety Report 22087081 (Version 1)
Quarter: 2023Q1

REPORT INFORMATION
  Report Type: Spontaneous
  Country: FR (occurrence: FR)
  Receive Date: 20230313
  Receipt Date: 20230313
  Transmission Date: 20230418
  Serious: Yes (Hospitalization)
  Sender: FDA-Public Use
  Company Number: None

PATIENT
  Age: 69 Year
  Sex: Male
  Weight: 124.8 kg

DRUGS (13)
  1. XARELTO [Suspect]
     Active Substance: RIVAROXABAN
     Indication: Cardiac flutter
     Route: 048
     Dates: end: 20221206
  2. COLCHICINE\DICYCLOMINE HYDROCHLORIDE [Suspect]
     Active Substance: COLCHICINE\DICYCLOMINE HYDROCHLORIDE
     Indication: Gout
     Dosage: 2 TABLETS/DAY FOR 3 DAYS THEN 1 TABLET/DAY
     Route: 048
     Dates: start: 20221123, end: 20221203
  3. IRBESARTAN [Suspect]
     Active Substance: IRBESARTAN
     Indication: Hypertension
     Route: 048
  4. ATORVASTATIN [Suspect]
     Active Substance: ATORVASTATIN
     Indication: Dyslipidaemia
     Route: 048
     Dates: end: 20221206
  5. RILMENIDINE [Concomitant]
     Active Substance: RILMENIDINE
  6. INDAPAMIDE [Concomitant]
     Active Substance: INDAPAMIDE
  7. FEBUXOSTAT [Concomitant]
     Active Substance: FEBUXOSTAT
  8. NASONEX [Concomitant]
     Active Substance: MOMETASONE FUROATE
  9. EPLERENONE [Concomitant]
     Active Substance: EPLERENONE
  10. AERIUS (DESLORATADINE) [Concomitant]
     Active Substance: DESLORATADINE
  11. FUROSEMIDE [Concomitant]
     Active Substance: FUROSEMIDE
  12. ASPIRIN [Concomitant]
     Active Substance: ASPIRIN
  13. AMLODIPINE [Concomitant]
     Active Substance: AMLODIPINE BESYLATE

REACTIONS (4)
  - Rhabdomyolysis [Recovering/Resolving]
  - Overdose [Recovered/Resolved]
  - Epistaxis [Recovered/Resolved]
  - Acute kidney injury [Recovering/Resolving]

NARRATIVE: CASE EVENT DATE: 20221205
